FAERS Safety Report 15027109 (Version 3)
Quarter: 2018Q3

REPORT INFORMATION
  Report Type: Report from Study
  Country: US (occurrence: US)
  Receive Date: 20180619
  Receipt Date: 20180801
  Transmission Date: 20181010
  Serious: Yes (Other)
  Sender: FDA-Public Use
  Company Number: US-ROCHE-2140859

PATIENT
  Sex: Female
  Weight: 46.76 kg

DRUGS (2)
  1. OCREVUS [Suspect]
     Active Substance: OCRELIZUMAB
     Dosage: THIRD INFUSION
     Route: 042
     Dates: start: 20180723
  2. OCREVUS [Suspect]
     Active Substance: OCRELIZUMAB
     Indication: SECONDARY PROGRESSIVE MULTIPLE SCLEROSIS
     Route: 042
     Dates: start: 201706

REACTIONS (4)
  - White blood cell count decreased [Recovering/Resolving]
  - Amnesia [Unknown]
  - Off label use [Unknown]
  - Intentional product use issue [Unknown]
